FAERS Safety Report 6877148-5 (Version None)
Quarter: 2010Q3

REPORT INFORMATION
  Report Type: 
  Country: None (occurrence: None)
  Receive Date: 20100727
  Receipt Date: 20100727
  Transmission Date: 20110219
  Serious: No
  Sender: FDA-Public Use
  Company Number: None

PATIENT
  Sex: Male
  Weight: 65.318 kg

DRUGS (1)
  1. BONIVA [Suspect]
     Indication: OSTEOPOROSIS
     Dosage: ONE - 150 MG MONTHLY PO
     Route: 048

REACTIONS (3)
  - GAIT DISTURBANCE [None]
  - MYALGIA [None]
  - PAIN IN EXTREMITY [None]
